FAERS Safety Report 6898402-7 (Version None)
Quarter: 2010Q3

REPORT INFORMATION
  Report Type: 
  Country: None (occurrence: None)
  Receive Date: 20100802
  Receipt Date: 20071003
  Transmission Date: 20110219
  Serious: Yes (Other)
  Sender: FDA-Public Use
  Company Number: US-PFIZER INC-2007083264

PATIENT
  Sex: Female
  Weight: 88.5 kg

DRUGS (4)
  1. LYRICA [Suspect]
     Indication: FIBROMYALGIA
     Route: 048
     Dates: start: 20070901
  2. FENTANYL [Concomitant]
     Route: 062
  3. SOMA [Concomitant]
  4. OXYCONTIN [Concomitant]

REACTIONS (2)
  - FEELING DRUNK [None]
  - OVERDOSE [None]
